FAERS Safety Report 8018011-6 (Version None)
Quarter: 2012Q1

REPORT INFORMATION
  Report Type: 
  Country: None (occurrence: None)
  Receive Date: 20120103
  Receipt Date: 20111222
  Transmission Date: 20120608
  Serious: Yes (Hospitalization, Other)
  Sender: FDA-Public Use
  Company Number: US-COVIDIEN/TYCO HEALTHCARE/MALLINCKRODT-T201102298

PATIENT
  Sex: Female
  Weight: 79.365 kg

DRUGS (2)
  1. MAGNEVIST [Suspect]
     Indication: NUCLEAR MAGNETIC RESONANCE IMAGING
     Dosage: UNK
     Dates: start: 20040521, end: 20040521
  2. OPTIMARK [Suspect]
     Indication: NUCLEAR MAGNETIC RESONANCE IMAGING BRAIN
     Dosage: 15 ML, SINGLE
     Dates: start: 20060602, end: 20060602

REACTIONS (31)
  - NEPHROGENIC SYSTEMIC FIBROSIS [None]
  - ARTERIAL HAEMORRHAGE [None]
  - CARDIAC FAILURE CONGESTIVE [None]
  - PLEURAL EFFUSION [None]
  - PROCEDURAL HYPOTENSION [None]
  - DIASTOLIC DYSFUNCTION [None]
  - LIGAMENT SPRAIN [None]
  - ARTHRALGIA [None]
  - CARDIOMEGALY [None]
  - PULMONARY HYPERTENSION [None]
  - DIABETIC NEUROPATHY [None]
  - ARTHRITIS [None]
  - INTERVERTEBRAL DISC DEGENERATION [None]
  - MUSCULOSKELETAL PAIN [None]
  - DEAFNESS [None]
  - HYPOXIA [None]
  - UPPER RESPIRATORY TRACT INFECTION [None]
  - FLUID OVERLOAD [None]
  - LUNG NEOPLASM [None]
  - RESTRICTIVE PULMONARY DISEASE [None]
  - MUSCULOSKELETAL DISCOMFORT [None]
  - PERICARDIAL EFFUSION [None]
  - BASAL CELL CARCINOMA [None]
  - GRAFT THROMBOSIS [None]
  - ATRIAL FIBRILLATION [None]
  - RECTAL POLYP [None]
  - LEUKOPENIA [None]
  - WOUND INFECTION [None]
  - PNEUMONIA [None]
  - ATELECTASIS [None]
  - OEDEMA [None]
